FAERS Safety Report 10453962 (Version 1)
Quarter: 2014Q3

REPORT INFORMATION
  Report Type: Spontaneous
  Country: US (occurrence: US)
  Receive Date: 20140915
  Receipt Date: 20140915
  Transmission Date: 20150326
  Serious: No
  Sender: FDA-Public Use
  Company Number: US-BRISTOL-MYERS SQUIBB COMPANY-20742029

PATIENT
  Age: 70 Year
  Sex: Male
  Weight: 101.58 kg

DRUGS (14)
  1. TYLENOL [Concomitant]
     Active Substance: ACETAMINOPHEN
     Dosage: 1 DF=4-6 TIMES
  2. GLUCOSAMINE [Concomitant]
     Active Substance: GLUCOSAMINE
  3. ELIQUIS [Suspect]
     Active Substance: APIXABAN
     Dates: start: 201310
  4. COREG [Concomitant]
     Active Substance: CARVEDILOL
  5. CHONDROITIN [Concomitant]
     Active Substance: CHONDROITIN
  6. SAW PALMETTO [Concomitant]
     Active Substance: SAW PALMETTO
  7. LASIX [Concomitant]
     Active Substance: FUROSEMIDE
  8. VITAMIN C [Concomitant]
     Active Substance: ASCORBIC ACID
  9. LISINOPRIL. [Concomitant]
     Active Substance: LISINOPRIL
  10. ASPIRIN. [Concomitant]
     Active Substance: ASPIRIN
  11. VITAMIN E [Concomitant]
     Active Substance: .ALPHA.-TOCOPHEROL
  12. DIGOXIN. [Concomitant]
     Active Substance: DIGOXIN
  13. SIMVASTATIN. [Concomitant]
     Active Substance: SIMVASTATIN
  14. POTASSIUM CHLORIDE. [Concomitant]
     Active Substance: POTASSIUM CHLORIDE

REACTIONS (5)
  - Musculoskeletal pain [Unknown]
  - Arthralgia [Unknown]
  - Dizziness [Unknown]
  - Gout [Unknown]
  - Back pain [Unknown]
